FAERS Safety Report 8617340-2 (Version None)
Quarter: 2012Q3

REPORT INFORMATION
  Report Type: 
  Country: None (occurrence: None)
  Receive Date: 20120823
  Receipt Date: 20120815
  Transmission Date: 20120928
  Serious: Yes (Hospitalization, Disabling, Other)
  Sender: FDA-Public Use
  Company Number: US-009507513-1205USA02826

PATIENT

DRUGS (3)
  1. CALCIUM (UNSPECIFIED) [Concomitant]
     Indication: OSTEOPOROSIS
     Dosage: 1500 MG, QD
  2. ALENDRONATE SODIUM [Suspect]
     Indication: OSTEOPOROSIS
     Dosage: 70 MG, UNK
     Route: 048
     Dates: start: 20080912
  3. FOSAMAX [Suspect]
     Indication: OSTEOPOROSIS
     Dosage: UNK
     Route: 048
     Dates: start: 20000101

REACTIONS (66)
  - CONVULSION [None]
  - GASTRIC BYPASS [None]
  - POLLAKIURIA [None]
  - ARTHRALGIA [None]
  - SPINAL FRACTURE [None]
  - PAIN [None]
  - AMNESIA [None]
  - INSOMNIA [None]
  - OESOPHAGEAL OBSTRUCTION [None]
  - HIP FRACTURE [None]
  - HUMERUS FRACTURE [None]
  - BREAST MASS [None]
  - MIGRAINE [None]
  - OVERDOSE [None]
  - POISONING [None]
  - SPINAL COMPRESSION FRACTURE [None]
  - HAEMOPTYSIS [None]
  - HAEMORRHAGIC DIATHESIS [None]
  - ALCOHOL ABUSE [None]
  - MALAISE [None]
  - ASTHENIA [None]
  - FEMUR FRACTURE [None]
  - CHOLECYSTECTOMY [None]
  - GALLBLADDER PAIN [None]
  - HERNIA REPAIR [None]
  - FATIGUE [None]
  - TREMOR [None]
  - SENSORY LEVEL ABNORMAL [None]
  - MUSCULAR WEAKNESS [None]
  - OROPHARYNGEAL PAIN [None]
  - VOMITING [None]
  - PAIN IN EXTREMITY [None]
  - STRESS FRACTURE [None]
  - CHEST PAIN [None]
  - LOSS OF CONSCIOUSNESS [None]
  - DEPRESSION [None]
  - EYE DISCHARGE [None]
  - HAEMATURIA [None]
  - SPEECH DISORDER [None]
  - POLYDIPSIA [None]
  - INCISION SITE HAEMATOMA [None]
  - SCOLIOSIS [None]
  - DIZZINESS [None]
  - MYALGIA [None]
  - NECK PAIN [None]
  - OSTEOPOROSIS [None]
  - ANXIETY [None]
  - WHEEZING [None]
  - FALL [None]
  - PARAESTHESIA [None]
  - INCREASED TENDENCY TO BRUISE [None]
  - BURSITIS [None]
  - ABDOMINAL PAIN [None]
  - NAUSEA [None]
  - CONSTIPATION [None]
  - UPPER LIMB FRACTURE [None]
  - PELVIC INFLAMMATORY DISEASE [None]
  - DYSPHAGIA [None]
  - BACK PAIN [None]
  - LOW TURNOVER OSTEOPATHY [None]
  - COMPLEX REGIONAL PAIN SYNDROME [None]
  - SPUTUM INCREASED [None]
  - DYSPNOEA [None]
  - SUBSTANCE ABUSE [None]
  - ACROCHORDON EXCISION [None]
  - DIARRHOEA [None]
